FAERS Safety Report 4880391-8 (Version None)
Quarter: 2005Q4

REPORT INFORMATION
  Report Type: 
  Country: None (occurrence: None)
  Receive Date: 20051223
  Receipt Date: 20051010
  Transmission Date: 20060501
  Serious: No
  Sender: FDA-Public Use
  Company Number: 05P-163-0313296-00

PATIENT
  Age: 13 Year
  Sex: Female
  Weight: 47.6277 kg

DRUGS (7)
  1. HUMIRA [Suspect]
     Indication: JUVENILE ARTHRITIS
     Dosage: 40 MG, 1 IN 2 WK, SUBCUTANEOUS
     Route: 058
     Dates: start: 20050901
  2. PREDNISONE [Concomitant]
  3. CELECOXIB [Concomitant]
  4. AZATHIOPRINE [Concomitant]
  5. OMEPRAZOLE [Concomitant]
  6. DOCUSATE SODIUM [Concomitant]
  7. PARACETAMOL [Concomitant]

REACTIONS (1)
  - ARTHRALGIA [None]
